FAERS Safety Report 4439495-6 (Version None)
Quarter: 2004Q3

REPORT INFORMATION
  Report Type: 
  Country: None (occurrence: None)
  Receive Date: 20040901
  Receipt Date: 20040901
  Transmission Date: 20050211
  Serious: Yes (Hospitalization)
  Sender: FDA-Public Use
  Company Number: None

PATIENT
  Sex: Male
  Weight: 106.5953 kg

DRUGS (6)
  1. NEURONTIN [Suspect]
     Indication: PROCTALGIA
     Dosage: 300 MG PO Q 4-5 HRS [PRIOR TO ADMISSION]
     Route: 048
  2. CODEINE [Concomitant]
  3. VALIUM [Concomitant]
  4. XANAX [Concomitant]
  5. GLYBURIDE [Concomitant]
  6. METFORMIN HCL [Concomitant]

REACTIONS (1)
  - COMA [None]
